FAERS Safety Report 8883007 (Version 1)
Quarter: 2012Q4

REPORT INFORMATION
  Report Type: 
  Country: JP (occurrence: JP)
  Receive Date: 20121104
  Receipt Date: 20121104
  Transmission Date: 20130627
  Serious: Yes (Other)
  Sender: FDA-Public Use
  Company Number: JP-009507513-1211JPN000745

PATIENT
  Age: 45 Year
  Sex: Male
  Weight: 64 kg

DRUGS (8)
  1. PEGINTRON [Suspect]
     Indication: HEPATITIS C
     Dosage: 1.5 Microgram per kilogram, qw
     Route: 058
     Dates: start: 20120820, end: 20120827
  2. REBETOL [Suspect]
     Indication: HEPATITIS C
     Dosage: 800 mg, qd
     Route: 048
     Dates: start: 20120820, end: 20120903
  3. TELAVIC [Suspect]
     Indication: HEPATITIS C
     Dosage: 2250 mg, qd
     Route: 048
     Dates: start: 20120820, end: 20120903
  4. LOXONIN [Concomitant]
     Indication: PROPHYLAXIS
     Dosage: 3 DF, qd
     Route: 048
     Dates: start: 20120820, end: 20120903
  5. MUCOSTA [Concomitant]
     Indication: PROPHYLAXIS
     Dosage: 3 DF, qd
     Route: 048
     Dates: start: 20120820, end: 20120903
  6. TAKEPRON [Concomitant]
     Indication: PROPHYLAXIS
     Dosage: 1 DF, qd
     Route: 048
     Dates: start: 20120820, end: 20120903
  7. ALLEGRA [Concomitant]
     Indication: PROPHYLAXIS
     Dosage: 120 mg, qd
     Route: 048
     Dates: start: 20120820, end: 20120903
  8. URINORM [Concomitant]
     Indication: PROPHYLAXIS
     Dosage: 25 mg, qd
     Route: 048
     Dates: start: 20120820, end: 20120903

REACTIONS (1)
  - Depression [Recovered/Resolved]
